FAERS Safety Report 4354099-1 (Version None)
Quarter: 2004Q2

REPORT INFORMATION
  Report Type: 
  Country: None (occurrence: None)
  Receive Date: 20040505
  Receipt Date: 20040505
  Transmission Date: 20050107
  Serious: Yes (Other)
  Sender: FDA-Public Use
  Company Number: None

PATIENT
  Age: 16 Year
  Sex: Male
  Weight: 68.0396 kg

DRUGS (4)
  1. ABILIFY [Suspect]
     Dosage: 5 MG PM
     Dates: start: 20040428
  2. ABILIFY [Suspect]
     Dosage: 5 MG PM
     Dates: start: 20040429
  3. ABILIFY [Suspect]
     Dosage: 5 MG PM
     Dates: start: 20040430
  4. ABILIFY [Suspect]
     Dosage: 5 MG PM
     Dates: start: 20040501

REACTIONS (4)
  - ABDOMINAL PAIN [None]
  - DIZZINESS [None]
  - HEADACHE [None]
  - VERTIGO [None]
